FAERS Safety Report 4754091-9 (Version None)
Quarter: 2005Q3

REPORT INFORMATION
  Report Type: 
  Country: None (occurrence: None)
  Receive Date: 20050824
  Receipt Date: 20050502
  Transmission Date: 20060218
  Serious: No
  Sender: FDA-Public Use
  Company Number: SUS1-2005-00370

PATIENT
  Age: 41 Year
  Sex: Female
  Weight: 113.4 kg

DRUGS (1)
  1. FOSRENOL [Suspect]
     Indication: HYPERPHOSPHATAEMIA
     Dosage: 500MG X2, 6X/DAY, ORAL
     Route: 048
     Dates: start: 20050427, end: 20050506

REACTIONS (2)
  - DIZZINESS [None]
  - PRESCRIBED OVERDOSE [None]
